FAERS Safety Report 5630632-4 (Version None)
Quarter: 2008Q1

REPORT INFORMATION
  Report Type: 
  Country: None (occurrence: None)
  Receive Date: 20080215
  Receipt Date: 20080203
  Transmission Date: 20080703
  Serious: No
  Sender: FDA-Public Use
  Company Number: WAES 0802USA00674

PATIENT
  Sex: Female

DRUGS (1)
  1. INJ IVOMEC UNK [Suspect]
     Indication: DRUG ADMINISTRATION ERROR
     Dosage: PO
     Route: 048
     Dates: start: 20080203, end: 20080203

REACTIONS (2)
  - ACCIDENTAL EXPOSURE [None]
  - STOMATITIS [None]
